FAERS Safety Report 14331782 (Version 1)
Quarter: 2017Q4

REPORT INFORMATION
  Report Type: Report from Study
  Country: BR (occurrence: BR)
  Receive Date: 20171228
  Receipt Date: 20171228
  Transmission Date: 20180321
  Serious: Yes (Other)
  Sender: FDA-Public Use
  Company Number: PHHY2016BR150604

PATIENT
  Sex: Female
  Weight: 82 kg

DRUGS (1)
  1. ACLASTA [Suspect]
     Active Substance: ZOLEDRONIC ACID
     Indication: OSTEOPOROSIS
     Dosage: ONCE A YEAR
     Route: 042

REACTIONS (9)
  - Cataract [Recovering/Resolving]
  - Alopecia [Unknown]
  - Body height decreased [Unknown]
  - Adverse drug reaction [Unknown]
  - Spinal pain [Unknown]
  - Pain in extremity [Unknown]
  - Malaise [Unknown]
  - Back pain [Unknown]
  - Bone pain [Unknown]
